FAERS Safety Report 4850503-0 (Version None)
Quarter: 2005Q4

REPORT INFORMATION
  Report Type: 
  Country: None (occurrence: None)
  Receive Date: 20051207
  Receipt Date: 20051207
  Transmission Date: 20060501
  Serious: No
  Sender: FDA-Public Use
  Company Number: None

PATIENT
  Sex: Female

DRUGS (1)
  1. BUPROPRION HCL [Suspect]
     Dates: start: 20051121, end: 20051124

REACTIONS (2)
  - PRURITUS [None]
  - URTICARIA [None]
